FAERS Safety Report 7463933-8 (Version None)
Quarter: 2011Q2

REPORT INFORMATION
  Report Type: 
  Country: None (occurrence: None)
  Receive Date: 20110506
  Receipt Date: 20110503
  Transmission Date: 20111010
  Serious: Yes (Death)
  Sender: FDA-Public Use
  Company Number: BR-GENZYME-RENA-1000820

PATIENT
  Sex: Male
  Weight: 54.5 kg

DRUGS (7)
  1. FABRAZYME [Suspect]
     Indication: FABRY'S DISEASE
     Dosage: 70 MG, Q2W
     Route: 042
     Dates: start: 20021105, end: 20100828
  2. CARVEDILOL [Concomitant]
     Route: 065
  3. AMLODIPINE BESYLATE [Concomitant]
     Route: 065
  4. RECOMBINANT ERYTHROPOIETIN [Concomitant]
     Route: 065
  5. ASPIRIN [Concomitant]
     Route: 065
  6. RENAGEL [Suspect]
     Indication: HYPERPHOSPHATAEMIA
     Dosage: 4.8 G, QD
     Route: 048
     Dates: start: 20060411, end: 20100831
  7. LOSARTAN [Concomitant]
     Route: 065

REACTIONS (1)
  - HAEMORRHAGIC STROKE [None]
